FAERS Safety Report 5308371-9 (Version None)
Quarter: 2007Q2

REPORT INFORMATION
  Report Type: 
  Country: None (occurrence: None)
  Receive Date: 20070423
  Receipt Date: 20070405
  Transmission Date: 20071010
  Serious: Yes (Hospitalization)
  Sender: FDA-Public Use
  Company Number: 2007BI003505

PATIENT
  Age: 53 Year
  Sex: Male
  Weight: 81.1939 kg

DRUGS (5)
  1. AVONEX [Suspect]
     Indication: MULTIPLE SCLEROSIS
     Dosage: 30 UG; QW; IM
     Route: 030
     Dates: start: 20051101
  2. AVONEX [Suspect]
     Indication: MULTIPLE SCLEROSIS
     Dosage: 30 UG; QW; IM
     Route: 030
     Dates: start: 20060104
  3. BACLOFEN [Concomitant]
  4. PROVIGIL [Concomitant]
  5. WELLBUTRIN [Concomitant]

REACTIONS (1)
  - BRAIN NEOPLASM BENIGN [None]
